FAERS Safety Report 10398944 (Version 1)
Quarter: 2014Q3

REPORT INFORMATION
  Report Type: Report from Study
  Country: BR (occurrence: BR)
  Receive Date: 20140821
  Receipt Date: 20140821
  Transmission Date: 20150326
  Serious: Yes (Other)
  Sender: FDA-Public Use
  Company Number: PHHY2014BR102343

PATIENT
  Age: 59 Year

DRUGS (4)
  1. FORMOTEROL [Suspect]
     Active Substance: FORMOTEROL
     Dosage: 12 UG, BID
  2. TIOTROPIUM [Concomitant]
     Active Substance: TIOTROPIUM
     Dosage: 18 UG PER DAY
  3. OMEPRAZOLE. [Concomitant]
     Active Substance: OMEPRAZOLE
     Dosage: 40 MG PER DAY
  4. BUDESONIDE. [Suspect]
     Active Substance: BUDESONIDE
     Dosage: 400 UG, BID

REACTIONS (4)
  - Emphysema [Unknown]
  - Lung hyperinflation [Unknown]
  - Dyspnoea [Not Recovered/Not Resolved]
  - Obstructive airways disorder [Unknown]
